FAERS Safety Report 19392859 (Version 1)
Quarter: 2021Q2

REPORT INFORMATION
  Report Type: Spontaneous
  Country: BR (occurrence: BR)
  Receive Date: 20210609
  Receipt Date: 20210609
  Transmission Date: 20210717
  Serious: Yes (Hospitalization)
  Sender: FDA-Public Use
  Company Number: NVSC2021BR127739

PATIENT
  Sex: Male

DRUGS (1)
  1. AMOXICILLIN SODIUM,POTASSIUM CLAVULANATE [Suspect]
     Active Substance: AMOXICILLIN\CLAVULANATE POTASSIUM
     Indication: PRODUCT USED FOR UNKNOWN INDICATION
     Dosage: 400 MG
     Route: 065

REACTIONS (3)
  - Hypersensitivity [Unknown]
  - Dehydration [Unknown]
  - Diarrhoea [Unknown]
